FAERS Safety Report 4595913-4 (Version None)
Quarter: 2005Q1

REPORT INFORMATION
  Report Type: 
  Country: None (occurrence: None)
  Receive Date: 20050224
  Receipt Date: 20050204
  Transmission Date: 20050727
  Serious: Yes (Hospitalization)
  Sender: FDA-Public Use
  Company Number: EWC050242630

PATIENT
  Age: 64 Year
  Sex: Female

DRUGS (2)
  1. FORTEO [Suspect]
     Indication: ANKYLOSING SPONDYLITIS
     Dosage: 20 UG/1
     Dates: start: 20041101, end: 20041104
  2. FORTEO [Suspect]
     Indication: OSTEOPOROSIS
     Dosage: 20 UG/1
     Dates: start: 20041101, end: 20041104

REACTIONS (15)
  - ABASIA [None]
  - ASTHENIA [None]
  - BLOOD PRESSURE INCREASED [None]
  - BURNING SENSATION [None]
  - CHILLS [None]
  - FATIGUE [None]
  - HEART RATE INCREASED [None]
  - HYPERHIDROSIS [None]
  - HYPOAESTHESIA [None]
  - MUSCULOSKELETAL DISCOMFORT [None]
  - NAUSEA [None]
  - STOMACH DISCOMFORT [None]
  - TONGUE DISORDER [None]
  - TREMOR [None]
  - VOMITING [None]
